FAERS Safety Report 6639486-0 (Version None)
Quarter: 2010Q1

REPORT INFORMATION
  Report Type: 
  Country: None (occurrence: None)
  Receive Date: 20100318
  Receipt Date: 20100305
  Transmission Date: 20100710
  Serious: Yes (Life-Threatening, Hospitalization)
  Sender: FDA-Public Use
  Company Number: AU-JNJFOC-20100303179

PATIENT
  Age: 21 Year
  Sex: Female

DRUGS (7)
  1. TRAMADOL HYDROCHLORIDE [Suspect]
     Indication: DRUG USE FOR UNKNOWN INDICATION
     Dosage: ESTIMATED DOSAGE OF 3 G
     Route: 048
  2. RISPERIDONE [Suspect]
     Indication: DRUG USE FOR UNKNOWN INDICATION
     Dosage: ESTIMATED DOSAGE OF 120 MG
     Route: 048
  3. LITHIUM [Suspect]
     Indication: DRUG USE FOR UNKNOWN INDICATION
     Dosage: ESTIMATED DOSAGE: 13 G
     Route: 048
  4. QUETIAPINE [Interacting]
     Indication: DRUG USE FOR UNKNOWN INDICATION
     Dosage: ESTIMATED DOSAGE: 15 G
     Route: 048
  5. ESCITALOPRAM [Suspect]
     Indication: DRUG USE FOR UNKNOWN INDICATION
     Dosage: ESTIMATED DOSAGE: 560 MG
     Route: 048
  6. MIRTAZAPINE [Suspect]
     Indication: DRUG USE FOR UNKNOWN INDICATION
     Dosage: ESTIMATED DOSAGE: 315 MG
     Route: 065
  7. FLUOXETINE [Interacting]
     Indication: DRUG USE FOR UNKNOWN INDICATION
     Dosage: ESTIMATED DOSAGE: 1.1 G
     Route: 048

REACTIONS (3)
  - DRUG INTERACTION [None]
  - MULTIPLE DRUG OVERDOSE [None]
  - SEROTONIN SYNDROME [None]
